FAERS Safety Report 20225360 (Version 1)
Quarter: 2021Q4

REPORT INFORMATION
  Report Type: Spontaneous
  Country: FR (occurrence: FR)
  Receive Date: 20211224
  Receipt Date: 20211224
  Transmission Date: 20220303
  Serious: Yes (Hospitalization)
  Sender: FDA-Public Use
  Company Number: FR-ABBVIE-21K-056-4209913-00

PATIENT
  Age: 83 Year
  Sex: Female
  Weight: 50 kg

DRUGS (2)
  1. VALPROATE SODIUM [Suspect]
     Active Substance: VALPROATE SODIUM
     Indication: Epilepsy
     Route: 048
     Dates: start: 20180605, end: 20180610
  2. VIMPAT [Suspect]
     Active Substance: LACOSAMIDE
     Indication: Epilepsy
     Route: 048
     Dates: start: 20180602, end: 20180605

REACTIONS (3)
  - Condition aggravated [Recovered/Resolved]
  - Rash erythematous [Recovered/Resolved]
  - Pruritus [Recovered/Resolved]

NARRATIVE: CASE EVENT DATE: 20180605
